FAERS Safety Report 9057670 (Version 1)
Quarter: 2013Q1

REPORT INFORMATION
  Report Type: Spontaneous
  Country: JP (occurrence: None)
  Receive Date: 20130117
  Receipt Date: 20130117
  Transmission Date: 20140127
  Serious: Yes (Other)
  Sender: FDA-Public Use
  Company Number: 2012P1068463

PATIENT
  Age: 72 Year
  Sex: Female

DRUGS (3)
  1. MINOCYCLINE [Suspect]
     Indication: RHEUMATOID ARTHRITIS
  2. PREDNISOLONE [Concomitant]
  3. SULFASALAZINE [Concomitant]

REACTIONS (8)
  - Pigmentation disorder [None]
  - Gait disturbance [None]
  - Muscular weakness [None]
  - Muscle atrophy [None]
  - Areflexia [None]
  - Myopathy [None]
  - Axonal neuropathy [None]
  - Peripheral sensory neuropathy [None]
